FAERS Safety Report 6050560-2 (Version None)
Quarter: 2009Q1

REPORT INFORMATION
  Report Type: 
  Country: None (occurrence: None)
  Receive Date: 20090122
  Receipt Date: 20090122
  Transmission Date: 20090719
  Serious: No
  Sender: FDA-Public Use
  Company Number: None

PATIENT
  Age: 67 Year
  Sex: Male
  Weight: 104.78 kg

DRUGS (2)
  1. TRIAMTERENE AND HYDROCHLOROTHIAZIDE [Suspect]
     Indication: HYPERTENSION
     Dosage: 25/37.5 MG EVERY DAY PO
     Route: 048
     Dates: start: 19980225, end: 20080804
  2. ALLOPURINOL [Suspect]
     Indication: GOUT
     Dosage: 300 MG EVERY DAY PO
     Route: 048
     Dates: start: 20050426

REACTIONS (4)
  - BLOOD URIC ACID INCREASED [None]
  - CONDITION AGGRAVATED [None]
  - DRUG HYPERSENSITIVITY [None]
  - GOUT [None]
